FAERS Safety Report 4709165-5 (Version None)
Quarter: 2005Q3

REPORT INFORMATION
  Report Type: 
  Country: None (occurrence: None)
  Receive Date: 20050705
  Receipt Date: 20050620
  Transmission Date: 20060218
  Serious: Yes (Death)
  Sender: FDA-Public Use
  Company Number: 2002132606US

PATIENT
  Age: 30 Year
  Sex: 0

DRUGS (3)
  1. ALDACTONE [Suspect]
     Indication: ILL-DEFINED DISORDER
     Dates: start: 20010101, end: 20010101
  2. PHENYTOIN [Suspect]
     Indication: ILL-DEFINED DISORDER
  3. DILTIAZEM [Suspect]
     Indication: ILL-DEFINED DISORDER
     Dates: start: 20010101, end: 20010101

REACTIONS (3)
  - COMPLETED SUICIDE [None]
  - INTENTIONAL MISUSE [None]
  - MULTIPLE DRUG OVERDOSE [None]
